FAERS Safety Report 21314568 (Version 1)
Quarter: 2022Q3

REPORT INFORMATION
  Report Type: Spontaneous
  Country: US (occurrence: US)
  Receive Date: 20220909
  Receipt Date: 20220909
  Transmission Date: 20221027
  Serious: No
  Sender: FDA-Public Use
  Company Number: US-PFIZER INC-PV202200007941

PATIENT
  Age: 79 Year
  Sex: Female
  Weight: 50.34 kg

DRUGS (2)
  1. BRAFTOVI [Suspect]
     Active Substance: ENCORAFENIB
     Indication: Colon cancer
     Dosage: 75 MG, 4X/DAY
     Dates: start: 202109
  2. MEKTOVI [Suspect]
     Active Substance: BINIMETINIB
     Dosage: UNK
     Dates: start: 202109

REACTIONS (2)
  - Rash [Unknown]
  - Skin laceration [Unknown]

NARRATIVE: CASE EVENT DATE: 20210901
